FAERS Safety Report 22211510 (Version 1)
Quarter: 2023Q2

REPORT INFORMATION
  Report Type: Spontaneous
  Country: US (occurrence: None)
  Receive Date: 20230413
  Receipt Date: 20230413
  Transmission Date: 20230721
  Serious: Yes (Other)
  Sender: FDA-Public Use
  Company Number: None

PATIENT
  Age: 42 Year
  Sex: Female

DRUGS (1)
  1. RINVOQ [Suspect]
     Active Substance: UPADACITINIB
     Indication: Rheumatoid arthritis
     Dosage: FREQUENCY : DAILY;?
     Route: 048
     Dates: start: 20230315

REACTIONS (7)
  - Rash [None]
  - Rash [None]
  - Rash vesicular [None]
  - Rash [None]
  - Rash pruritic [None]
  - Burning sensation [None]
  - Blister rupture [None]

NARRATIVE: CASE EVENT DATE: 20230412
